FAERS Safety Report 12165648 (Version 6)
Quarter: 2018Q2

REPORT INFORMATION
  Report Type: Report from Study
  Country: IT (occurrence: IT)
  Receive Date: 20160309
  Receipt Date: 20180627
  Transmission Date: 20180711
  Serious: Yes (Hospitalization, Congenital Anomaly)
  Sender: FDA-Public Use
  Company Number: IT-MYLANLABS-2016M1009180

PATIENT
  Age: 10 Day
  Sex: Female
  Weight: 3.25 kg

DRUGS (2)
  1. GILENYA [Suspect]
     Active Substance: FINGOLIMOD HYDROCHLORIDE
     Indication: MULTIPLE SCLEROSIS
     Dosage: 0.5 MG, QD
     Route: 064
     Dates: end: 20150428
  2. BACLOFEN. [Suspect]
     Active Substance: BACLOFEN
     Indication: MUSCLE SPASTICITY
     Dosage: 25 MG, QD
     Route: 064
     Dates: end: 20150625

REACTIONS (13)
  - Abdominal distension [Recovering/Resolving]
  - Foetal exposure during pregnancy [Recovered/Resolved]
  - Congenital megacolon [Recovering/Resolving]
  - Intestinal obstruction [Recovering/Resolving]
  - Obstructive defaecation [Recovering/Resolving]
  - Ventricular hypertrophy [Recovering/Resolving]
  - Condition aggravated [Unknown]
  - Vomiting [Recovering/Resolving]
  - Heart disease congenital [Unknown]
  - Constipation [Recovering/Resolving]
  - Otorrhoea [Unknown]
  - Faeces hard [Recovering/Resolving]
  - Abdominal pain [Recovering/Resolving]

NARRATIVE: CASE EVENT DATE: 20151221
